FAERS Safety Report 9393632 (Version 2)
Quarter: 2013Q3

REPORT INFORMATION
  Report Type: Spontaneous
  Country: JP (occurrence: JP)
  Receive Date: 20130710
  Receipt Date: 20130723
  Transmission Date: 20140515
  Serious: Yes (Hospitalization)
  Sender: FDA-Public Use
  Company Number: JP-GLAXOSMITHKLINE-B0896086A

PATIENT
  Age: 77 Year
  Sex: Female

DRUGS (11)
  1. LAMICTAL [Suspect]
     Indication: BIPOLAR DISORDER
     Dosage: 50MG PER DAY
     Route: 048
     Dates: start: 20130508, end: 20130521
  2. LAMICTAL [Suspect]
     Indication: BIPOLAR DISORDER
     Dosage: 100MG PER DAY
     Route: 048
     Dates: start: 20130522, end: 20130603
  3. LIMAS [Concomitant]
     Dosage: 200MG PER DAY
     Route: 048
     Dates: start: 20130605, end: 20130611
  4. ZYPREXA [Concomitant]
     Dosage: 5MG PER DAY
     Route: 048
     Dates: start: 20130508, end: 20130511
  5. LENDORMIN D [Concomitant]
     Dosage: .25MG PER DAY
     Route: 048
     Dates: start: 20130508, end: 20130621
  6. SEROQUEL [Concomitant]
     Dosage: 50MG PER DAY
     Route: 048
     Dates: start: 20130511, end: 20130514
  7. SEROQUEL [Concomitant]
     Dosage: 100MG PER DAY
     Route: 048
     Dates: start: 20130514, end: 20130610
  8. VESICARE [Concomitant]
     Dosage: 5MG PER DAY
     Route: 048
     Dates: start: 20130618
  9. SILECE [Concomitant]
     Dosage: 1MG PER DAY
     Route: 065
     Dates: start: 20130621
  10. ABILIFY [Concomitant]
     Dosage: 3ML PER DAY
     Route: 048
     Dates: start: 20130621, end: 20130624
  11. ABILIFY [Concomitant]
     Dosage: 6ML PER DAY
     Route: 048
     Dates: start: 20130625

REACTIONS (3)
  - Rash [Recovered/Resolved]
  - Stomatitis [Recovered/Resolved]
  - Skin disorder [Recovering/Resolving]
